FAERS Safety Report 20826021 (Version 1)
Quarter: 2022Q2

REPORT INFORMATION
  Report Type: Spontaneous
  Country: JP (occurrence: JP)
  Receive Date: 20220513
  Receipt Date: 20220513
  Transmission Date: 20220720
  Serious: Yes (Hospitalization)
  Sender: FDA-Public Use
  Company Number: JP-BAUSCH-BL-2022-011282

PATIENT
  Sex: Female
  Weight: 2.508 kg

DRUGS (6)
  1. LORAZEPAM [Suspect]
     Active Substance: LORAZEPAM
     Indication: Depressive symptom
     Route: 064
  2. DULOXETINE [Suspect]
     Active Substance: DULOXETINE
     Indication: Depressive symptom
     Route: 064
  3. FLUNITRAZEPAM [Suspect]
     Active Substance: FLUNITRAZEPAM
     Indication: Depressive symptom
     Route: 064
  4. TRAZODONE [Suspect]
     Active Substance: TRAZODONE HYDROCHLORIDE
     Indication: Depressive symptom
     Route: 064
  5. BROTIZOLAM [Suspect]
     Active Substance: BROTIZOLAM
     Indication: Depressive symptom
     Route: 064
  6. ATOMOXETINE [Suspect]
     Active Substance: ATOMOXETINE
     Indication: Depressive symptom
     Route: 064

REACTIONS (2)
  - Drug withdrawal syndrome neonatal [Recovered/Resolved]
  - Maternal exposure during pregnancy [Unknown]
